FAERS Safety Report 19103413 (Version 1)
Quarter: 2021Q2

REPORT INFORMATION
  Report Type: Spontaneous
  Country: KR (occurrence: KR)
  Receive Date: 20210407
  Receipt Date: 20210407
  Transmission Date: 20210717
  Serious: Yes (Other)
  Sender: FDA-Public Use
  Company Number: NVSC2021KR074871

PATIENT
  Age: 55 Year
  Sex: Female

DRUGS (1)
  1. GLIVEC [Suspect]
     Active Substance: IMATINIB MESYLATE
     Indication: CHRONIC MYELOID LEUKAEMIA
     Dosage: 400 MG
     Route: 065

REACTIONS (5)
  - Myelofibrosis [Unknown]
  - Thrombocytosis [Unknown]
  - Janus kinase 2 mutation [Unknown]
  - Splenomegaly [Unknown]
  - Leukocytosis [Unknown]

NARRATIVE: CASE EVENT DATE: 201105
